FAERS Safety Report 18639767 (Version 2)
Quarter: 2020Q4

REPORT INFORMATION
  Report Type: Spontaneous
  Country: US (occurrence: US)
  Receive Date: 20201220
  Receipt Date: 20201228
  Transmission Date: 20210114
  Serious: Yes (Hospitalization)
  Sender: FDA-Public Use
  Company Number: US-NOVOPROD-773650

PATIENT
  Age: 72 Year
  Sex: Male

DRUGS (1)
  1. TRESIBA [Suspect]
     Active Substance: INSULIN DEGLUDEC
     Indication: PRODUCT USED FOR UNKNOWN INDICATION
     Dosage: 50 IU, QD
     Route: 058
     Dates: start: 20181201

REACTIONS (1)
  - Retinal operation [Not Recovered/Not Resolved]

NARRATIVE: CASE EVENT DATE: 20201016
